FAERS Safety Report 26096462 (Version 1)
Quarter: 2025Q4

REPORT INFORMATION
  Report Type: Spontaneous
  Country: EU (occurrence: EU)
  Receive Date: 20251127
  Receipt Date: 20251127
  Transmission Date: 20260119
  Serious: Yes (Other)
  Sender: RANBAXY
  Company Number: EU-SUN PHARMACEUTICAL INDUSTRIES LTD-2025R1-538285

PATIENT
  Age: 42 Year
  Sex: Male

DRUGS (1)
  1. ALENDRONIC ACID [Suspect]
     Active Substance: ALENDRONIC ACID
     Indication: Fracture
     Dosage: 70 MILLIGRAM, WEEKLY
     Route: 065
     Dates: start: 2023

REACTIONS (2)
  - Drug ineffective [Unknown]
  - Treatment failure [Unknown]
